FAERS Safety Report 4314971-5 (Version None)
Quarter: 2004Q1

REPORT INFORMATION
  Report Type: 
  Country: None (occurrence: None)
  Receive Date: 20040309
  Receipt Date: 20040225
  Transmission Date: 20041129
  Serious: Yes (Other)
  Sender: FDA-Public Use
  Company Number: US-JNJFOC-20040206323

PATIENT
  Age: 39 Year
  Sex: Female
  Weight: 86.1834 kg

DRUGS (8)
  1. INFLIXIMAB (INFLIXIMAB, RECOMBINANT) LYOPHILIZED POWDER [Suspect]
     Indication: RHEUMATOID ARTHRITIS
     Dosage: 300 MG, 1 IN 6 WEEK, INTRAVENOUS
     Route: 042
     Dates: start: 20000727
  2. ARTHROTEC [Concomitant]
  3. IBUPROFEN [Concomitant]
  4. TYLENOL [Concomitant]
  5. MULTIVITAMIN [Concomitant]
  6. ZYRTEC [Concomitant]
  7. METHOTREXATE [Concomitant]
  8. DEPO-MEDROL [Concomitant]

REACTIONS (2)
  - BLISTER [None]
  - LYMPHADENOPATHY [None]
